FAERS Safety Report 24694307 (Version 1)
Quarter: 2024Q4

REPORT INFORMATION
  Report Type: Spontaneous
  Country: SE (occurrence: SE)
  Receive Date: 20241204
  Receipt Date: 20241204
  Transmission Date: 20250115
  Serious: Yes (Other)
  Sender: AUROBINDO
  Company Number: SE-TEVA-VS-3264776

PATIENT
  Age: 63 Year
  Sex: Male

DRUGS (2)
  1. FINASTERIDE [Suspect]
     Active Substance: FINASTERIDE
     Indication: Urinary retention
     Dosage: UNK, ONCE A DAY (DAILY BEFORE LUNCH)
     Route: 065
  2. ALFUZOSIN [Suspect]
     Active Substance: ALFUZOSIN
     Indication: Urinary retention
     Dosage: 10 MILLIGRAM, ONCE A DAY, 1 TABLET DAILY AFTER DINNER
     Route: 048
     Dates: start: 202310, end: 20241022

REACTIONS (3)
  - Foreign body in throat [Unknown]
  - Weight decreased [Not Recovered/Not Resolved]
  - Vomiting [Not Recovered/Not Resolved]
